FAERS Safety Report 6575900-7 (Version None)
Quarter: 2010Q1

REPORT INFORMATION
  Report Type: 
  Country: None (occurrence: None)
  Receive Date: 20100209
  Receipt Date: 20100205
  Transmission Date: 20100710
  Serious: Yes (Hospitalization, Other)
  Sender: FDA-Public Use
  Company Number: CH-WYE-G05363610

PATIENT
  Age: 55 Year
  Sex: Female
  Weight: 70 kg

DRUGS (10)
  1. EFFEXOR XR [Suspect]
     Indication: DEPRESSION
     Route: 048
     Dates: start: 20080422, end: 20100107
  2. EFFEXOR XR [Suspect]
     Route: 048
     Dates: start: 20100108
  3. ELTROXIN [Concomitant]
     Indication: THYROID DISORDER
     Route: 048
     Dates: start: 20080101
  4. VITAMINS [Concomitant]
     Dosage: DOSE AND FREQUENCY UNKNOWN
  5. ZURCAL [Concomitant]
     Indication: GASTRIC ULCER
     Route: 048
     Dates: start: 20080101
  6. SEROQUEL [Concomitant]
     Indication: PERSONALITY DISORDER
     Dosage: DOSE AND FREQUENCY AS NEEDED
  7. CALCIUM [Concomitant]
     Dosage: DOSE AND FREQUENCY UNKNOWN
  8. LITHIUM CARBONATE [Concomitant]
     Indication: DEPRESSION
     Route: 048
     Dates: start: 20080101
  9. LITHIUM CARBONATE [Concomitant]
     Indication: PERSONALITY DISORDER
  10. TRIMIPRAMINE [Concomitant]
     Indication: SLEEP DISORDER
     Route: 048
     Dates: start: 20080101

REACTIONS (3)
  - AGITATION [None]
  - ANTIDEPRESSANT DRUG LEVEL ABOVE THERAPEUTIC [None]
  - WEIGHT DECREASED [None]
